FAERS Safety Report 4611172-8 (Version None)
Quarter: 2005Q1

REPORT INFORMATION
  Report Type: 
  Country: None (occurrence: None)
  Receive Date: 20050317
  Receipt Date: 20050304
  Transmission Date: 20050727
  Serious: Yes (Other)
  Sender: FDA-Public Use
  Company Number: DE-JNJFOC-20050301633

PATIENT
  Age: 74 Year
  Sex: Female
  Weight: 76 kg

DRUGS (9)
  1. REMINYL [Suspect]
     Indication: DRUG USE FOR UNKNOWN INDICATION
     Route: 049
     Dates: start: 20040927, end: 20041003
  2. REMERGIL [Suspect]
     Indication: DRUG USE FOR UNKNOWN INDICATION
     Route: 049
  3. KALINOR [Suspect]
     Route: 065
  4. KALINOR [Suspect]
     Indication: DRUG USE FOR UNKNOWN INDICATION
     Route: 065
  5. ALLOPURINOL [Concomitant]
     Route: 049
  6. DELIX [Concomitant]
     Route: 049
  7. FUROSEMIDE [Concomitant]
     Route: 049
  8. BIFITERAL [Concomitant]
     Route: 049
  9. XIMOVAN [Concomitant]
     Route: 049

REACTIONS (2)
  - EXANTHEM [None]
  - PRURITUS [None]
